FAERS Safety Report 13102058 (Version 1)
Quarter: 2017Q1

REPORT INFORMATION
  Report Type: Spontaneous
  Country: TH (occurrence: TH)
  Receive Date: 20170110
  Receipt Date: 20170110
  Transmission Date: 20170428
  Serious: Yes (Death, Hospitalization)
  Sender: FDA-Public Use
  Company Number: TH-B.I. PHARMACEUTICALS,INC./RIDGEFIELD-2017-BI-000951

PATIENT
  Age: 54 Year
  Sex: Female

DRUGS (4)
  1. GILOTRIF [Suspect]
     Active Substance: AFATINIB
     Indication: NON-SMALL CELL LUNG CANCER
     Route: 065
     Dates: start: 20160208
  2. GILOTRIF [Suspect]
     Active Substance: AFATINIB
     Route: 065
  3. KEPPRA [Concomitant]
     Active Substance: LEVETIRACETAM
     Indication: PRODUCT USED FOR UNKNOWN INDICATION
     Dates: start: 20160127
  4. GILOTRIF [Suspect]
     Active Substance: AFATINIB
     Route: 065
     Dates: start: 20160815

REACTIONS (10)
  - Brain oedema [Fatal]
  - Dry skin [Unknown]
  - Paronychia [Unknown]
  - Folliculitis [Unknown]
  - Angular cheilitis [Unknown]
  - Coma [Fatal]
  - Complex partial seizures [Fatal]
  - Acne [Unknown]
  - Diarrhoea [Unknown]
  - Metastases to central nervous system [Fatal]

NARRATIVE: CASE EVENT DATE: 20161111
